FAERS Safety Report 7998666-2 (Version None)
Quarter: 2011Q4

REPORT INFORMATION
  Report Type: 
  Country: None (occurrence: None)
  Receive Date: 20111221
  Receipt Date: 20111213
  Transmission Date: 20120403
  Serious: Yes (Hospitalization, Other)
  Sender: FDA-Public Use
  Company Number: US-MERCK-1109USA00859

PATIENT
  Age: 74 Year
  Sex: Female
  Weight: 78 kg

DRUGS (2)
  1. FOSAMAX [Suspect]
     Indication: OSTEOPOROSIS
     Route: 048
     Dates: start: 20000101, end: 20070101
  2. BONIVA [Suspect]
     Indication: OSTEOPOROSIS
     Route: 065

REACTIONS (42)
  - ATAXIA [None]
  - HYPERSENSITIVITY [None]
  - RIB FRACTURE [None]
  - SPINAL COLUMN STENOSIS [None]
  - ATELECTASIS [None]
  - OSTEOARTHRITIS [None]
  - HYPERLIPIDAEMIA [None]
  - GASTROOESOPHAGEAL REFLUX DISEASE [None]
  - OESTROGEN DEFICIENCY [None]
  - CEREBRAL SMALL VESSEL ISCHAEMIC DISEASE [None]
  - SUPRAVENTRICULAR TACHYCARDIA [None]
  - PNEUMONIA ASPIRATION [None]
  - HYPERTENSION [None]
  - BACK DISORDER [None]
  - ANGINA PECTORIS [None]
  - DEPRESSION [None]
  - ANKLE FRACTURE [None]
  - HEART RATE IRREGULAR [None]
  - PNEUMONIA [None]
  - NERVOUSNESS [None]
  - SPONDYLOLISTHESIS [None]
  - MUSCLE STRAIN [None]
  - TYPE 2 DIABETES MELLITUS [None]
  - BLOOD CHOLESTEROL INCREASED [None]
  - CHRONIC OBSTRUCTIVE PULMONARY DISEASE [None]
  - ESSENTIAL HYPERTENSION [None]
  - HIP FRACTURE [None]
  - TIBIA FRACTURE [None]
  - ARTHRALGIA [None]
  - ARTHROPATHY [None]
  - SCOLIOSIS [None]
  - AMNESIA [None]
  - TONSILLAR DISORDER [None]
  - PLATELET COUNT DECREASED [None]
  - DYSLIPIDAEMIA [None]
  - EFFUSION [None]
  - FEMUR FRACTURE [None]
  - FALL [None]
  - RENAL IMPAIRMENT [None]
  - DRUG HYPERSENSITIVITY [None]
  - INTERVERTEBRAL DISC DEGENERATION [None]
  - EYE DISORDER [None]
